FAERS Safety Report 15854421 (Version 4)
Quarter: 2019Q2

REPORT INFORMATION
  Report Type: Report from Study
  Country: DE (occurrence: DE)
  Receive Date: 20190122
  Receipt Date: 20190626
  Transmission Date: 20190711
  Serious: No
  Sender: FDA-Public Use
  Company Number: DE-ROCHE-2248759

PATIENT
  Age: 40 Year
  Sex: Female

DRUGS (5)
  1. FOSTER NEXTHALER [Concomitant]
  2. OCREVUS [Suspect]
     Active Substance: OCRELIZUMAB
     Route: 042
     Dates: start: 20190116
  3. GABAPENTIN. [Concomitant]
     Active Substance: GABAPENTIN
  4. OCREVUS [Suspect]
     Active Substance: OCRELIZUMAB
     Indication: RELAPSING-REMITTING MULTIPLE SCLEROSIS
     Route: 042
     Dates: start: 20190102
  5. EUTHYROX [Concomitant]
     Active Substance: LEVOTHYROXINE SODIUM

REACTIONS (8)
  - Headache [Recovered/Resolved]
  - Influenza like illness [Recovering/Resolving]
  - Nasopharyngitis [Recovered/Resolved]
  - Erythema [Recovered/Resolved]
  - Feeling hot [Recovered/Resolved]
  - Cystitis noninfective [Recovered/Resolved]
  - Gingivitis [Recovered/Resolved]
  - Nipple inflammation [Recovering/Resolving]

NARRATIVE: CASE EVENT DATE: 20190102
